FAERS Safety Report 16297411 (Version 1)
Quarter: 2019Q2

REPORT INFORMATION
  Report Type: Spontaneous
  Country: GB (occurrence: GB)
  Receive Date: 20190510
  Receipt Date: 20190510
  Transmission Date: 20190711
  Serious: Yes (Death, Other)
  Sender: FDA-Public Use
  Company Number: GB-AUROBINDO-AUR-APL-2019-024888

PATIENT

DRUGS (8)
  1. ZOPICLONE [Suspect]
     Active Substance: ZOPICLONE
     Indication: INSOMNIA
     Dosage: ONCE AT NIGHT AS NEEDED - ONE DOSE ONLY
     Route: 048
     Dates: end: 20180415
  2. COCODAMOL [Suspect]
     Active Substance: ACETAMINOPHEN\CODEINE PHOSPHATE
     Indication: ANALGESIC THERAPY
     Dosage: 2 X 30/500 FOUR TIMES DAILY AS NEEDED.
     Route: 048
     Dates: start: 20180415
  3. PROMETHAZINE HYDROCHLORIDE. [Suspect]
     Active Substance: PROMETHAZINE HYDROCHLORIDE
     Indication: AGITATION
     Dosage: 1 DOSAGE FORM (25-50MG AS NEEDED UP TO TWICE DAILY. TOOK ONE DOSE ONLY)
     Route: 048
     Dates: start: 20180415
  4. LORAZEPAM. [Suspect]
     Active Substance: LORAZEPAM
     Indication: AGITATION
     Dosage: 2 MILLIGRAM, AS NECESSARY (ONE DOSE TAKEN)
     Route: 048
     Dates: start: 20180415
  5. CO-AMOXICLAV [Concomitant]
     Active Substance: AMOXICILLIN\CLAVULANATE POTASSIUM
     Indication: PRODUCT USED FOR UNKNOWN INDICATION
     Dosage: UNK
     Route: 065
  6. QUETIAPINE. [Suspect]
     Active Substance: QUETIAPINE
     Indication: BIPOLAR DISORDER
     Dosage: 100 MILLIGRAM, DAILY (AT NIGHT)
     Route: 048
  7. VENLAFAXINE [Suspect]
     Active Substance: VENLAFAXINE HYDROCHLORIDE
     Indication: BIPOLAR I DISORDER
     Dosage: 150 MILLIGRAM, DAILY (AT NIGHT)
     Route: 048
  8. HALOPERIDOL. [Suspect]
     Active Substance: HALOPERIDOL
     Indication: PSYCHOMOTOR HYPERACTIVITY
     Dosage: 5 MILLIGRAM, AS NECESSARY (RECEIVED ONE DOSE ONLY)
     Route: 048
     Dates: start: 20180415, end: 20180415

REACTIONS (1)
  - Arrhythmia [Fatal]

NARRATIVE: CASE EVENT DATE: 20180416
